FAERS Safety Report 4745709-5 (Version None)
Quarter: 2005Q3

REPORT INFORMATION
  Report Type: 
  Country: None (occurrence: None)
  Receive Date: 20050815
  Receipt Date: 20050815
  Transmission Date: 20060218
  Serious: No
  Sender: FDA-Public Use
  Company Number: None

PATIENT
  Sex: Female
  Weight: 71.9858 kg

DRUGS (1)
  1. FLONASE [Suspect]
     Indication: RHINITIS ALLERGIC
     Dosage: 2 SPRAYS PER NOSTRIL
     Dates: start: 20050729, end: 20050807

REACTIONS (3)
  - ABDOMINAL DISTENSION [None]
  - DIARRHOEA [None]
  - FATIGUE [None]
